FAERS Safety Report 13125438 (Version 1)
Quarter: 2017Q1

REPORT INFORMATION
  Report Type: Spontaneous
  Country: US (occurrence: US)
  Receive Date: 20170118
  Receipt Date: 20170118
  Transmission Date: 20170428
  Serious: No
  Sender: FDA-Public Use
  Company Number: US-DEPOMED, INC.-US-2016DEP009506

PATIENT

DRUGS (9)
  1. AMLODIPINE BESYLATE. [Concomitant]
     Active Substance: AMLODIPINE BESYLATE
     Indication: BLOOD PRESSURE MEASUREMENT
     Dosage: 5 MG, QD
     Route: 048
     Dates: start: 1996
  2. SIMVASTATIN. [Concomitant]
     Active Substance: SIMVASTATIN
     Indication: BLOOD CHOLESTEROL
     Dosage: 20 MG, QD
     Route: 048
     Dates: start: 1996
  3. INSULIN MIX [Concomitant]
     Indication: TYPE 2 DIABETES MELLITUS
     Dosage: 75/25 UNIT, QD
  4. NUCYNTA [Suspect]
     Active Substance: TAPENTADOL HYDROCHLORIDE
     Indication: BACK PAIN
  5. NUCYNTA [Suspect]
     Active Substance: TAPENTADOL HYDROCHLORIDE
     Indication: BREAKTHROUGH PAIN
     Dosage: 75 MG, QD
     Route: 048
     Dates: start: 2013, end: 2013
  6. MORPHINE [Concomitant]
     Active Substance: MORPHINE
     Indication: NECK PAIN
     Dosage: 15 MG, BID
     Route: 048
     Dates: start: 2006
  7. MORPHINE [Concomitant]
     Active Substance: MORPHINE
     Indication: BACK PAIN
  8. NUCYNTA [Suspect]
     Active Substance: TAPENTADOL HYDROCHLORIDE
     Indication: NECK PAIN
     Dosage: PRN-CUT IN HALF THE 75 MG TABLET AND TAKES 1/2 OF IT
     Route: 048
     Dates: start: 2013
  9. VALSARTAN AND HYDROCHLOROTHIAZIDE [Concomitant]
     Active Substance: HYDROCHLOROTHIAZIDE\VALSARTAN
     Indication: BLOOD PRESSURE MEASUREMENT
     Dosage: 160-25 MG, QD
     Route: 048
     Dates: start: 1996

REACTIONS (6)
  - Cognitive disorder [Not Recovered/Not Resolved]
  - Hyperhidrosis [Not Recovered/Not Resolved]
  - Wrong technique in product usage process [Unknown]
  - Tremor [Not Recovered/Not Resolved]
  - Hypoglycaemia [Not Recovered/Not Resolved]
  - Blood glucose decreased [Not Recovered/Not Resolved]

NARRATIVE: CASE EVENT DATE: 2013
